FAERS Safety Report 14706221 (Version 1)
Quarter: 2018Q2

REPORT INFORMATION
  Report Type: Spontaneous
  Country: PL (occurrence: PL)
  Receive Date: 20180402
  Receipt Date: 20180402
  Transmission Date: 20180711
  Serious: Yes (Hospitalization)
  Sender: FDA-Public Use
  Company Number: PL-MYLANLABS-2018M1018821

PATIENT
  Age: 4 Year

DRUGS (1)
  1. IBUPROFEN. [Suspect]
     Active Substance: IBUPROFEN
     Indication: PHARYNGITIS
     Dosage: UNK

REACTIONS (2)
  - Product use in unapproved indication [Unknown]
  - Lip swelling [Unknown]

NARRATIVE: CASE EVENT DATE: 20161201
